FAERS Safety Report 13032963 (Version 1)
Quarter: 2016Q4

REPORT INFORMATION
  Report Type: Spontaneous
  Country: US (occurrence: US)
  Receive Date: 20161215
  Receipt Date: 20161215
  Transmission Date: 20170207
  Serious: Yes (Other)
  Sender: FDA-Public Use
  Company Number: US-BAUSCH-BL-2016-031364

PATIENT
  Age: 68 Year
  Sex: Male

DRUGS (1)
  1. VERTEPORFIN [Suspect]
     Active Substance: VERTEPORFIN
     Indication: POLYPOIDAL CHOROIDAL VASCULOPATHY
     Route: 042

REACTIONS (3)
  - Diplopia [Unknown]
  - Chorioretinal atrophy [Unknown]
  - Retinal vascular disorder [Unknown]
